FAERS Safety Report 7088618-1 (Version None)
Quarter: 2010Q4

REPORT INFORMATION
  Report Type: 
  Country: None (occurrence: None)
  Receive Date: 20101029
  Receipt Date: 20101025
  Transmission Date: 20110411
  Serious: Yes (Other)
  Sender: FDA-Public Use
  Company Number: DKLU1065876

PATIENT
  Age: 7 Year
  Sex: Male

DRUGS (3)
  1. SABRIL [Suspect]
     Indication: INFANTILE SPASMS
     Dosage: 1000 MG MILLIGRAM(S), AM, ORAL, 1000 MG MILLIGRAM(S), EVENING, ORAL
     Route: 048
     Dates: start: 20100101, end: 20101023
  2. FRISIUM (CLOBAZAM) [Concomitant]
  3. NEURONTIN [Concomitant]

REACTIONS (2)
  - GRAND MAL CONVULSION [None]
  - TREATMENT NONCOMPLIANCE [None]
